FAERS Safety Report 9236537 (Version 2)
Quarter: 2013Q2

REPORT INFORMATION
  Report Type: Spontaneous
  Country: JP (occurrence: JP)
  Receive Date: 20130417
  Receipt Date: 20130529
  Transmission Date: 20140414
  Serious: Yes (Life-Threatening, Hospitalization)
  Sender: FDA-Public Use
  Company Number: JP-ROCHE-1214420

PATIENT
  Sex: Male
  Weight: 49 kg

DRUGS (10)
  1. ACTEMRA [Suspect]
     Indication: RHEUMATOID ARTHRITIS
     Route: 041
     Dates: start: 20100118, end: 20110404
  2. THEO-DUR [Concomitant]
     Route: 048
  3. RIMATIL [Concomitant]
     Route: 048
     Dates: start: 2004, end: 200605
  4. RIMATIL [Concomitant]
     Route: 048
     Dates: start: 200711
  5. PREDONINE [Concomitant]
     Route: 048
     Dates: start: 2000
  6. CALBLOCK [Concomitant]
     Route: 048
  7. TAKEPRON [Concomitant]
     Route: 048
  8. ALFAROL [Concomitant]
     Route: 048
  9. HYDROCHLOROTHIAZIDE/TELMISARTAN [Concomitant]
     Dosage: REPORTED DRUG: MICOMBI
     Route: 048
  10. HALCION [Concomitant]
     Route: 048

REACTIONS (3)
  - Renal failure acute [Recovering/Resolving]
  - Infection [Recovering/Resolving]
  - Intervertebral discitis [Recovered/Resolved]
